FAERS Safety Report 8579598-8 (Version None)
Quarter: 2012Q3

REPORT INFORMATION
  Report Type: 
  Country: None (occurrence: None)
  Receive Date: 20120808
  Receipt Date: 20120625
  Transmission Date: 20120928
  Serious: Yes (Other)
  Sender: FDA-Public Use
  Company Number: FR-UCBSA-060708

PATIENT
  Age: 56 Year
  Sex: Male
  Weight: 59 kg

DRUGS (5)
  1. PREDNISONE TAB [Concomitant]
     Indication: RHEUMATOID ARTHRITIS
     Route: 048
     Dates: start: 20120320
  2. CIMZIA [Suspect]
     Indication: RHEUMATOID ARTHRITIS
     Dosage: 400 MG EVERY TWO WEEKS AND THEN 200 MG EVERY TWO WEEKS
     Route: 058
     Dates: start: 20120322
  3. INNOHEP [Suspect]
     Indication: PHLEBITIS
  4. KETOPROFEN [Concomitant]
     Indication: RHEUMATOID ARTHRITIS
     Route: 048
     Dates: start: 20120119
  5. METHOTREXATE [Concomitant]
     Indication: RHEUMATOID ARTHRITIS
     Route: 048
     Dates: start: 20120120

REACTIONS (2)
  - TRANSAMINASES INCREASED [None]
  - PHLEBITIS [None]
